FAERS Safety Report 25847813 (Version 1)
Quarter: 2025Q3

REPORT INFORMATION
  Report Type: Spontaneous
  Country: US (occurrence: None)
  Receive Date: 20250924
  Receipt Date: 20250924
  Transmission Date: 20251020
  Serious: Yes (Hospitalization)
  Sender: FDA-CTU
  Company Number: None

PATIENT
  Sex: Male

DRUGS (14)
  1. TERIPARATIDE [Suspect]
     Active Substance: TERIPARATIDE
     Indication: Hypocalcaemia
     Dosage: FREQUENCY : DAILY;?
     Route: 058
     Dates: start: 20250418
  2. FUROSEMIDE [Concomitant]
     Active Substance: FUROSEMIDE
  3. OCTREOTIDE 1 ML SDV [Concomitant]
  4. CALCIUM CARBONATE [Concomitant]
     Active Substance: CALCIUM CARBONATE
  5. SPIRONOLACTONE [Concomitant]
     Active Substance: SPIRONOLACTONE
  6. SINGULAIR [Concomitant]
     Active Substance: MONTELUKAST SODIUM
  7. PLAVIX [Concomitant]
     Active Substance: CLOPIDOGREL BISULFATE
  8. SYMBICORT [Concomitant]
     Active Substance: BUDESONIDE\FORMOTEROL FUMARATE DIHYDRATE
  9. OCTREOTIDE ACETATE [Concomitant]
     Active Substance: OCTREOTIDE ACETATE
  10. VITAMIN D [Concomitant]
     Active Substance: VITAMIN D NOS
  11. ALBUMIN HUMAN [Concomitant]
     Active Substance: ALBUMIN HUMAN
  12. RENVELA [Concomitant]
     Active Substance: SEVELAMER CARBONATE
  13. CALCITRIOL [Concomitant]
     Active Substance: CALCITRIOL
  14. OCTREOTIDE [Suspect]
     Active Substance: OCTREOTIDE

REACTIONS (3)
  - Viral infection [None]
  - Blood calcium decreased [None]
  - Blood sodium decreased [None]
